FAERS Safety Report 5101948-5 (Version None)
Quarter: 2006Q3

REPORT INFORMATION
  Report Type: 
  Country: None (occurrence: None)
  Receive Date: 20060907
  Receipt Date: 20060830
  Transmission Date: 20061208
  Serious: Yes (Death)
  Sender: FDA-Public Use
  Company Number: 229305

PATIENT
  Age: 89 Year
  Sex: Female

DRUGS (13)
  1. RANIBIZUMAB (RANIBIZUMAB) PWDR + SOLVENT, INJECTION SOLN [Suspect]
     Indication: MACULAR DEGENERATION
     Dosage: INTRAVITREAL
     Route: 050
     Dates: start: 20051213
  2. LEVOXYL [Concomitant]
  3. DIGOXIN [Concomitant]
  4. ISOSORBIDE DINITRATE [Concomitant]
  5. LISINOPRIL [Concomitant]
  6. PREDNISONE [Concomitant]
  7. ZOCOR [Concomitant]
  8. ADVAIR DISKUS 100/50 [Concomitant]
  9. XALATAN [Concomitant]
  10. CARTIA XT [Concomitant]
  11. ASCORBIC ACID [Concomitant]
  12. TYLENOL (CAPLET) [Concomitant]
  13. SPIRAPRIL (SPIRAPRIL HYDROCHLORIDE) [Concomitant]

REACTIONS (1)
  - DEATH [None]
